FAERS Safety Report 6516318-2 (Version None)
Quarter: 2009Q4

REPORT INFORMATION
  Report Type: 
  Country: None (occurrence: None)
  Receive Date: 20091223
  Receipt Date: 20091211
  Transmission Date: 20100525
  Serious: Yes (Death)
  Sender: FDA-Public Use
  Company Number: JP-BRISTOL-MYERS SQUIBB COMPANY-14902894

PATIENT
  Age: 39 Year
  Sex: Male

DRUGS (2)
  1. ABILIFY [Suspect]
     Indication: SCHIZOPHRENIA
     Dosage: STRENGTH-6MG
     Route: 048
  2. SEROQUEL [Suspect]
     Dosage: STRENGTH-25MG
     Route: 048

REACTIONS (1)
  - ASPHYXIA [None]
